FAERS Safety Report 9729191 (Version 1)
Quarter: 2013Q4

REPORT INFORMATION
  Report Type: Spontaneous
  Country: GB (occurrence: GB)
  Receive Date: 20131204
  Receipt Date: 20131204
  Transmission Date: 20140711
  Serious: Yes (Other)
  Sender: FDA-Public Use
  Company Number: GB-GLAXOSMITHKLINE-B0949902A

PATIENT
  Sex: 0

DRUGS (1)
  1. NIQUITIN [Suspect]
     Indication: EX-TOBACCO USER
     Route: 065

REACTIONS (8)
  - Bipolar disorder [Unknown]
  - Suicide attempt [Unknown]
  - Deja vu [Unknown]
  - Tachyphrenia [Unknown]
  - Insomnia [Unknown]
  - Paranoia [Unknown]
  - Hallucination [Unknown]
  - Intentional drug misuse [Unknown]
